FAERS Safety Report 4381674-0 (Version None)
Quarter: 2004Q2

REPORT INFORMATION
  Report Type: 
  Country: None (occurrence: None)
  Receive Date: 20040603
  Receipt Date: 20031202
  Transmission Date: 20050107
  Serious: Yes (Hospitalization)
  Sender: FDA-Public Use
  Company Number: 200318439US

PATIENT
  Age: 45 Year
  Sex: Female
  Weight: 132 kg

DRUGS (6)
  1. LOVENOX [Suspect]
     Indication: DEEP VENOUS THROMBOSIS PROPHYLAXIS
     Dosage: 40 MG QD SC
     Route: 058
  2. SYNTHROID [Concomitant]
  3. ZOLOFT [Concomitant]
  4. PRILOSEC [Concomitant]
  5. GLUCOTROL [Concomitant]
  6. ORAL CONTRACEPTIVE NOS [Concomitant]

REACTIONS (2)
  - DEEP VEIN THROMBOSIS [None]
  - OEDEMA PERIPHERAL [None]
